FAERS Safety Report 25650304 (Version 2)
Quarter: 2025Q3

REPORT INFORMATION
  Report Type: Report from Study
  Country: US (occurrence: US)
  Receive Date: 20250806
  Receipt Date: 20250811
  Transmission Date: 20251020
  Serious: Yes (Other)
  Sender: ABBVIE
  Company Number: US-ABBVIE-6400576

PATIENT
  Sex: Female

DRUGS (1)
  1. SKYRIZI [Suspect]
     Active Substance: RISANKIZUMAB-RZAA
     Indication: Psoriasis
     Route: 058
     Dates: start: 20240519

REACTIONS (9)
  - Gastric bypass [Unknown]
  - Thyroid hormones increased [Unknown]
  - Psoriasis [Unknown]
  - Joint swelling [Unknown]
  - Hernia repair [Unknown]
  - Blood parathyroid hormone abnormal [Unknown]
  - Hepatic enzyme increased [Unknown]
  - Incision site impaired healing [Recovered/Resolved]
  - Arthralgia [Unknown]
